FAERS Safety Report 9215493 (Version 1)
Quarter: 2013Q2

REPORT INFORMATION
  Report Type: Spontaneous
  Country: US (occurrence: US)
  Receive Date: 20130406
  Receipt Date: 20130406
  Transmission Date: 20140414
  Serious: No
  Sender: FDA-Public Use
  Company Number: US-009507513-1304USA002507

PATIENT
  Age: 50 Year
  Sex: Female

DRUGS (2)
  1. PROVENTIL [Suspect]
     Indication: HYPERSENSITIVITY
     Dosage: 1 DF, Q6H
     Route: 055
     Dates: start: 20130327, end: 20130329
  2. BENTONITE [Concomitant]

REACTIONS (2)
  - Burning sensation [Recovering/Resolving]
  - Rash [Recovering/Resolving]
